FAERS Safety Report 13766847 (Version 1)
Quarter: 2017Q3

REPORT INFORMATION
  Report Type: Spontaneous
  Country: US (occurrence: US)
  Receive Date: 20170718
  Receipt Date: 20170718
  Transmission Date: 20171127
  Serious: No
  Sender: FDA-Public Use
  Company Number: None

PATIENT
  Age: 17 Year
  Sex: Male
  Weight: 72 kg

DRUGS (3)
  1. KEPPRA [Concomitant]
     Active Substance: LEVETIRACETAM
  2. VIMPAT [Concomitant]
     Active Substance: LACOSAMIDE
  3. DIVALPROEX SOD ER [Suspect]
     Active Substance: DIVALPROEX SODIUM
     Indication: EPILEPSY
     Dosage: ?          OTHER STRENGTH:MG;QUANTITY:500 TABLET(S);?
     Route: 048
     Dates: start: 20170227, end: 20170320

REACTIONS (6)
  - Abdominal pain [None]
  - Vomiting [None]
  - Malaise [None]
  - Therapy cessation [None]
  - Ammonia increased [None]
  - Therapy change [None]

NARRATIVE: CASE EVENT DATE: 20170320
